FAERS Safety Report 5855191-2 (Version None)
Quarter: 2008Q3

REPORT INFORMATION
  Report Type: 
  Country: None (occurrence: None)
  Receive Date: 20080821
  Receipt Date: 20080812
  Transmission Date: 20090109
  Serious: Yes (Other)
  Sender: FDA-Public Use
  Company Number: 2008-02980

PATIENT
  Age: 56 Year
  Sex: Male
  Weight: 81.6 kg

DRUGS (3)
  1. VELCADE [Suspect]
     Indication: DRUG USE FOR UNKNOWN INDICATION
  2. THALIDOMIDE [Suspect]
     Indication: DRUG USE FOR UNKNOWN INDICATION
  3. DEXAMETHASONE TAB [Suspect]
     Indication: DRUG USE FOR UNKNOWN INDICATION

REACTIONS (1)
  - SWOLLEN TONGUE [None]
